FAERS Safety Report 7805173-6 (Version None)
Quarter: 2011Q4

REPORT INFORMATION
  Report Type: 
  Country: None (occurrence: None)
  Receive Date: 20111010
  Receipt Date: 20110930
  Transmission Date: 20120403
  Serious: Yes (Hospitalization)
  Sender: FDA-Public Use
  Company Number: PHHY2011US87261

PATIENT
  Age: 51 Year
  Sex: Female

DRUGS (5)
  1. TRIAMCINOLONE [Suspect]
     Indication: OSTEOARTHRITIS
     Dosage: 40 MG, UNK
     Route: 014
  2. TRIAMCINOLONE [Suspect]
     Dosage: 40 MG, UNK
     Route: 014
  3. TRIAMCINOLONE [Suspect]
     Dosage: 40 MG, UNK
     Route: 014
  4. SERTRALINE HYDROCHLORIDE [Concomitant]
  5. TOPIRAMATE [Concomitant]

REACTIONS (5)
  - SUICIDE ATTEMPT [None]
  - PARANOIA [None]
  - SUICIDAL IDEATION [None]
  - MENTAL DISORDER [None]
  - AGITATION [None]
